FAERS Safety Report 15563699 (Version 1)
Quarter: 2018Q4

REPORT INFORMATION
  Report Type: Spontaneous
  Country: ES (occurrence: ES)
  Receive Date: 20181029
  Receipt Date: 20181029
  Transmission Date: 20190205
  Serious: Yes (Other)
  Sender: FDA-Public Use
  Company Number: PHHY2018ES131259

PATIENT

DRUGS (2)
  1. OMEPRAZOLE. [Suspect]
     Active Substance: OMEPRAZOLE
     Indication: HELICOBACTER INFECTION
     Dosage: UNK (AT BREAKFAST AND DINNER)
     Route: 048
  2. PYLERA [Suspect]
     Active Substance: BISMUTH SUBCITRATE POTASSIUM\METRONIDAZOLE\TETRACYCLINE HYDROCHLORIDE
     Indication: HELICOBACTER INFECTION
     Dosage: UNK (3 CAPSULES FOUR TIMES A DAY)
     Route: 065

REACTIONS (1)
  - Clostridium difficile colitis [Unknown]
